FAERS Safety Report 11099706 (Version 1)
Quarter: 2015Q2

REPORT INFORMATION
  Report Type: Spontaneous
  Country: US (occurrence: US)
  Receive Date: 20150508
  Receipt Date: 20150508
  Transmission Date: 20150821
  Serious: Yes (Hospitalization)
  Sender: FDA-Public Use
  Company Number: US-JNJFOC-20150420327

PATIENT
  Age: 64 Year
  Sex: Male
  Weight: 156.8 kg

DRUGS (3)
  1. ZARNESTRA [Suspect]
     Active Substance: TIPIFARNIB
     Indication: PERIPHERAL T-CELL LYMPHOMA UNSPECIFIED
     Route: 048
     Dates: start: 20060307
  2. LEVAQUIN [Suspect]
     Active Substance: LEVOFLOXACIN
     Indication: PRODUCT USED FOR UNKNOWN INDICATION
     Route: 048
     Dates: start: 20150411
  3. ZARNESTRA [Suspect]
     Active Substance: TIPIFARNIB
     Indication: PERIPHERAL T-CELL LYMPHOMA UNSPECIFIED
     Route: 048
     Dates: start: 20150325, end: 20150413

REACTIONS (3)
  - Decreased appetite [Unknown]
  - Large intestine perforation [Recovering/Resolving]
  - Peripheral swelling [Unknown]

NARRATIVE: CASE EVENT DATE: 20150413
